FAERS Safety Report 6836345-5 (Version None)
Quarter: 2010Q3

REPORT INFORMATION
  Report Type: 
  Country: None (occurrence: None)
  Receive Date: 20100712
  Receipt Date: 20100712
  Transmission Date: 20110219
  Serious: No
  Sender: FDA-Public Use
  Company Number: None

PATIENT
  Age: 16 Year
  Sex: Male
  Weight: 58.9676 kg

DRUGS (1)
  1. OMEPRAZOLE [Suspect]
     Indication: GASTROOESOPHAGEAL REFLUX DISEASE
     Dosage: ONE PILL DAILY PO
     Route: 048
     Dates: start: 20100501, end: 20100502

REACTIONS (3)
  - HEADACHE [None]
  - VIITH NERVE PARALYSIS [None]
  - VISUAL IMPAIRMENT [None]
